FAERS Safety Report 4879613-9 (Version None)
Quarter: 2006Q1

REPORT INFORMATION
  Report Type: 
  Country: None (occurrence: None)
  Receive Date: 20060111
  Receipt Date: 20060104
  Transmission Date: 20060701
  Serious: Yes (Hospitalization)
  Sender: FDA-Public Use
  Company Number: 2006003029

PATIENT
  Age: 92 Year
  Sex: Female

DRUGS (9)
  1. AMLODIPINE [Suspect]
     Indication: ILL-DEFINED DISORDER
     Dosage: 5 MG (5 MG, 1 IN 1 D), ORAL
     Route: 048
  2. DIGOXIN [Suspect]
     Indication: ILL-DEFINED DISORDER
     Dosage: 0.5 DF (DAILY), ORAL
     Route: 048
  3. FUROSEMIDE [Suspect]
     Indication: ILL-DEFINED DISORDER
     Dosage: 1DF (1 IN 1 D), ORAL
     Route: 048
  4. ARICEPT [Suspect]
     Indication: ILL-DEFINED DISORDER
     Dosage: 1 DF (1 IN 1 D), ORAL
     Route: 048
  5. CORVASAL (MOLSIDOMINE) [Suspect]
     Indication: ILL-DEFINED DISORDER
     Dosage: 4 MG (2 MG, 2 IN 1 D),  ORAL
     Route: 048
  6. SINTROM [Suspect]
     Indication: ILL-DEFINED DISORDER
     Dosage: 0.75 DF (DAILY), ORAL
     Route: 048
     Dates: start: 20050101
  7. OMEPRAZOLE [Concomitant]
  8. EFFEXOR [Concomitant]
  9. POTASSIUM CHLORIDE [Concomitant]

REACTIONS (5)
  - HAEMATOMA [None]
  - INTERNATIONAL NORMALISED RATIO INCREASED [None]
  - NORMOCHROMIC NORMOCYTIC ANAEMIA [None]
  - OVERDOSE [None]
  - RENAL HAEMATOMA [None]
